FAERS Safety Report 17445655 (Version 1)
Quarter: 2020Q1

REPORT INFORMATION
  Report Type: Spontaneous
  Country: FR (occurrence: FR)
  Receive Date: 20200221
  Receipt Date: 20200221
  Transmission Date: 20200409
  Serious: Yes (Life-Threatening)
  Sender: FDA-Public Use
  Company Number: FR-009507513-2002FRA006227

PATIENT
  Age: 61 Year
  Sex: Female
  Weight: 48 kg

DRUGS (15)
  1. ALIMTA [Suspect]
     Active Substance: PEMETREXED DISODIUM
     Dosage: 480 MILLIGRAM
     Route: 042
     Dates: start: 20191128, end: 20191220
  2. TEGRETOL [Suspect]
     Active Substance: CARBAMAZEPINE
     Dosage: 200 MILLIGRAM, QD (MORNING AND EVENING)
     Route: 048
     Dates: start: 20200107
  3. ACETAMINOPHEN. [Suspect]
     Active Substance: ACETAMINOPHEN
     Indication: PAIN MANAGEMENT
     Dosage: 4 GRAM, QD
     Route: 048
     Dates: end: 20200107
  4. OXYCODONE [Suspect]
     Active Substance: OXYCODONE
     Dosage: 60 MILLIGRAM (+ BOLUS 15 MG)
     Route: 048
     Dates: start: 20191209, end: 20191217
  5. ZOMETA [Suspect]
     Active Substance: ZOLEDRONIC ACID
     Indication: OSTEOPOROSIS
     Dosage: 4 MILLIGRAM, Q3W
     Route: 042
     Dates: start: 20191207, end: 20191228
  6. TEGRETOL [Suspect]
     Active Substance: CARBAMAZEPINE
     Dosage: 600 MILLIGRAM, QD (MORNING AND EVENING)
     Route: 048
     Dates: start: 20191224, end: 20200107
  7. OXYCODONE [Suspect]
     Active Substance: OXYCODONE
     Indication: PAIN MANAGEMENT
     Dosage: 30 MILLIGRAM, Q12H (+ 10 MG OF BOLUS)
     Route: 048
     Dates: start: 20191205, end: 20191209
  8. CARBOPLATIN. [Suspect]
     Active Substance: CARBOPLATIN
     Indication: ADENOCARCINOMA
     Dosage: 480 MILLIGRAM
     Route: 042
     Dates: start: 20191128, end: 20191220
  9. LOVENOX [Concomitant]
     Active Substance: ENOXAPARIN SODIUM
     Indication: THROMBOSIS PROPHYLAXIS
     Dosage: UNK
     Route: 058
     Dates: start: 20191204
  10. TEGRETOL [Suspect]
     Active Substance: CARBAMAZEPINE
     Dosage: 400 MILLIGRAM, QD (MORNING AND EVENING)
     Route: 048
     Dates: start: 20191216, end: 20191224
  11. CARBOPLATIN. [Suspect]
     Active Substance: CARBOPLATIN
     Dosage: 480 MILLIGRAM
     Route: 042
     Dates: start: 20191128, end: 20191220
  12. KEYTRUDA [Suspect]
     Active Substance: PEMBROLIZUMAB
     Indication: ADENOCARCINOMA
     Dosage: 200 MILLIGRAM
     Route: 042
     Dates: start: 20191128, end: 20191220
  13. ALIMTA [Suspect]
     Active Substance: PEMETREXED DISODIUM
     Indication: ADENOCARCINOMA
     Dosage: 650 MILLIGRAM
     Route: 042
     Dates: start: 20191128, end: 20191220
  14. TEGRETOL [Suspect]
     Active Substance: CARBAMAZEPINE
     Indication: PAIN MANAGEMENT
     Dosage: 200 MILLIGRAM, QD (MORNING AND EVENING)
     Route: 048
     Dates: start: 20191213, end: 20191216
  15. OXYCODONE [Suspect]
     Active Substance: OXYCODONE
     Dosage: 4.8 MILLIGRAM, QH (+ 10 MG OF BOLUS THEN SWITCH TO MORPHINE ON 02-JAN-2020)
     Route: 048
     Dates: start: 20191209, end: 20191217

REACTIONS (2)
  - Hepatitis cholestatic [Not Recovered/Not Resolved]
  - Hepatic function abnormal [Not Recovered/Not Resolved]

NARRATIVE: CASE EVENT DATE: 20191223
